FAERS Safety Report 25889093 (Version 1)
Quarter: 2025Q4

REPORT INFORMATION
  Report Type: Spontaneous
  Country: RS (occurrence: RS)
  Receive Date: 20251007
  Receipt Date: 20251007
  Transmission Date: 20260118
  Serious: Yes (Other)
  Sender: MERCK SHARP & DOHME LLC
  Company Number: RS-009507513-2334304

PATIENT
  Age: 62 Year
  Sex: Female

DRUGS (7)
  1. PEMBROLIZUMAB [Suspect]
     Active Substance: PEMBROLIZUMAB
     Indication: Invasive ductal breast carcinoma
     Dosage: TIME INTERVAL: CYCLICAL: CYCLICAL, 4 CYCLES, NEOADJUVANT
     Dates: start: 202406, end: 202410
  2. PEMBROLIZUMAB [Suspect]
     Active Substance: PEMBROLIZUMAB
     Indication: Invasive ductal breast carcinoma
     Dosage: TIME INTERVAL: CYCLICAL: CYCLICAL, 4 CYCLES, NEOADJUVANT
     Dates: start: 202410, end: 202501
  3. PEMBROLIZUMAB [Suspect]
     Active Substance: PEMBROLIZUMAB
     Indication: Invasive ductal breast carcinoma
     Dosage: TIME INTERVAL: CYCLICAL: CYCLICAL, ADJUVANT
     Dates: start: 2025, end: 20250925
  4. TAXOL [Suspect]
     Active Substance: PACLITAXEL
     Indication: Invasive ductal breast carcinoma
     Dosage: WEEKLY
     Dates: start: 202406, end: 202410
  5. CARBOPLATIN [Suspect]
     Active Substance: CARBOPLATIN
     Indication: Triple negative breast cancer
     Dosage: AUC 1.5
     Dates: start: 202406, end: 202410
  6. ADRIAMYCIN [Suspect]
     Active Substance: DOXORUBICIN HYDROCHLORIDE
     Indication: Invasive ductal breast carcinoma
     Dosage: TIME INTERVAL: CYCLICAL: CYCLICAL, 4 CYCLES
     Dates: start: 202410, end: 202501
  7. CYCLOPHOSPHAMIDE [Suspect]
     Active Substance: CYCLOPHOSPHAMIDE
     Indication: Triple negative breast cancer
     Dosage: TIME INTERVAL: CYCLICAL: CYCLICAL, 4 CYCLES
     Dates: start: 202410, end: 202501

REACTIONS (17)
  - Neutropenia [Unknown]
  - Myalgia [Unknown]
  - Headache [Unknown]
  - Arthralgia [Unknown]
  - Adenosis sclerosing [Unknown]
  - Intraductal papilloma of breast [Unknown]
  - Metaplasia [Unknown]
  - Breast hyperplasia [Unknown]
  - Neutropenia [Recovered/Resolved]
  - Polyneuropathy [Unknown]
  - Cough [Unknown]
  - C-reactive protein abnormal [Unknown]
  - Chest X-ray abnormal [Unknown]
  - Fibrocystic breast disease [Unknown]
  - Breast dysplasia [Unknown]
  - Mastitis [Unknown]
  - Lymphadenitis [Unknown]

NARRATIVE: CASE EVENT DATE: 20240101
